FAERS Safety Report 7774299-8 (Version None)
Quarter: 2011Q3

REPORT INFORMATION
  Report Type: 
  Country: None (occurrence: None)
  Receive Date: 20110923
  Receipt Date: 20110915
  Transmission Date: 20111222
  Serious: Yes (Death, Hospitalization)
  Sender: FDA-Public Use
  Company Number: ES-SANOFI-AVENTIS-2011SA051181

PATIENT
  Age: 70 Year
  Sex: Male
  Weight: 88.7 kg

DRUGS (8)
  1. GLYBURIDE [Concomitant]
     Dates: start: 20080215, end: 20110504
  2. LISINOPRIL [Concomitant]
     Dates: start: 20000101
  3. EZETIMIBE [Concomitant]
     Dates: start: 20080215
  4. HYDROCHLOROTHIAZIDE [Concomitant]
     Dates: start: 20000101
  5. DOXAZOSIN MESYLATE [Concomitant]
     Indication: HYPERTENSION
  6. ASPIRIN [Concomitant]
     Indication: PROPHYLAXIS
     Dates: start: 20020101
  7. LANTUS [Suspect]
     Indication: DIABETES MELLITUS
     Dosage: DOSAGE: 28 (UNITS UNKNOWN)
     Route: 058
     Dates: start: 20080623, end: 20110504
  8. METFORMIN HCL [Concomitant]
     Dates: start: 20000101, end: 20110504

REACTIONS (5)
  - METASTASES TO ADRENALS [None]
  - METASTASES TO LIVER [None]
  - COLON CANCER STAGE IV [None]
  - METASTASES TO LUNG [None]
  - METASTASES TO BONE [None]
